FAERS Safety Report 16173647 (Version 1)
Quarter: 2019Q2

REPORT INFORMATION
  Report Type: Spontaneous
  Country: US (occurrence: US)
  Receive Date: 20190408
  Receipt Date: 20190408
  Transmission Date: 20190711
  Serious: No
  Sender: FDA-Public Use
  Company Number: None

PATIENT
  Age: 66 Year
  Sex: Female
  Weight: 93.6 kg

DRUGS (16)
  1. ZETIA 10MG DAILY [Concomitant]
  2. OZEMPIC 1 MG EVERY 7 DAYS [Concomitant]
  3. ASPIRIN 81 MG DAILY [Concomitant]
  4. FREESTYLE LIBRE [Concomitant]
  5. MULTIVITAMIN 1 TABLET BY MOUTH DAILY [Concomitant]
  6. ROSUVASTATIN 10MG DAILY [Concomitant]
  7. FLUTICASONE 2 SPRAYS DAILY PRN [Concomitant]
  8. RAMIPRIL 10MG TWICE DAILY [Concomitant]
  9. JARDIANCE [Suspect]
     Active Substance: EMPAGLIFLOZIN
     Indication: TYPE 2 DIABETES MELLITUS
     Route: 048
     Dates: start: 20171031, end: 20190305
  10. DICLOFENAC GEL 4 GS TO LOW BACK UP TO 4 TIMES A DAY [Concomitant]
  11. REPATHA 140 MG EVERY 14 DAYS [Concomitant]
  12. METFORMIN 1000 MG BY MOUTH TWICE DAILY [Concomitant]
  13. ONDANSETRON 1 TABLET EVERY 8 HOURS AS NEEDED [Concomitant]
  14. VITAMIN B12 1000 MCG DAILY [Concomitant]
  15. HUMULIN MIX 70/30 27 UNITS BEFORE BREAKFAST AND 8 UNITS BEFORE DINNER [Concomitant]
  16. LEVOTHYROXINE 100 MCG BY MOUTH DAILY [Concomitant]

REACTIONS (2)
  - Back pain [None]
  - Urine odour abnormal [None]

NARRATIVE: CASE EVENT DATE: 20190305
